FAERS Safety Report 17544937 (Version 6)
Quarter: 2021Q2

REPORT INFORMATION
  Report Type: Spontaneous
  Country: US (occurrence: US)
  Receive Date: 20200316
  Receipt Date: 20210427
  Transmission Date: 20210716
  Serious: Yes (Other)
  Sender: FDA-Public Use
  Company Number: US-PFIZER INC-2020112390

PATIENT
  Age: 57 Year
  Sex: Male

DRUGS (1)
  1. XELJANZ XR [Suspect]
     Active Substance: TOFACITINIB CITRATE
     Indication: RHEUMATOID ARTHRITIS
     Dosage: 11 MG, 1X/DAY
     Route: 048
     Dates: start: 202003, end: 202102

REACTIONS (7)
  - Pneumonia [Unknown]
  - Depression [Unknown]
  - Discouragement [Unknown]
  - Therapeutic response unexpected [Unknown]
  - Cough [Unknown]
  - Product dose omission issue [Unknown]
  - Sinus congestion [Unknown]
